FAERS Safety Report 8154171-4 (Version None)
Quarter: 2012Q1

REPORT INFORMATION
  Report Type: 
  Country: None (occurrence: None)
  Receive Date: 20120221
  Receipt Date: 20120214
  Transmission Date: 20120608
  Serious: Yes (Other)
  Sender: FDA-Public Use
  Company Number: JP-PFIZER INC-2012040049

PATIENT
  Age: 41 Year
  Sex: Female
  Weight: 52.2 kg

DRUGS (1)
  1. PF-02341066 [Suspect]
     Indication: NON-SMALL CELL LUNG CANCER
     Dosage: 250 MG, 2X/DAY
     Route: 048
     Dates: start: 20110317, end: 20120214

REACTIONS (1)
  - INTERSTITIAL LUNG DISEASE [None]
